FAERS Safety Report 11324543 (Version 1)
Quarter: 2015Q3

REPORT INFORMATION
  Report Type: Spontaneous
  Country: TR (occurrence: TR)
  Receive Date: 20150730
  Receipt Date: 20150730
  Transmission Date: 20151125
  Serious: Yes (Other)
  Sender: FDA-Public Use
  Company Number: TR-GLAXOSMITHKLINE-TR2015GSK107351

PATIENT
  Age: 14 Year
  Sex: Female

DRUGS (4)
  1. ROPINIROLE. [Suspect]
     Active Substance: ROPINIROLE
     Dosage: 8 MG, QD
  2. AMANTADINE [Suspect]
     Active Substance: AMANTADINE
     Indication: PARKINSONISM
     Dosage: 200 MG, QD
  3. LEVODOPA [Suspect]
     Active Substance: LEVODOPA
     Indication: PARKINSONISM
     Dosage: VERY LOW DOSES
  4. ROPINIROLE. [Suspect]
     Active Substance: ROPINIROLE
     Indication: PARKINSONISM
     Dosage: 16 MG, QD

REACTIONS (8)
  - Dyskinesia [Unknown]
  - Psychiatric symptom [Unknown]
  - Agitation [Unknown]
  - Irritability [Unknown]
  - Aggression [Unknown]
  - Thinking abnormal [Unknown]
  - Gaze palsy [Unknown]
  - Balance disorder [Unknown]
